FAERS Safety Report 4498317-8 (Version None)
Quarter: 2004Q4

REPORT INFORMATION
  Report Type: 
  Country: None (occurrence: None)
  Receive Date: 20041109
  Receipt Date: 20041109
  Transmission Date: 20050328
  Serious: Yes (Hospitalization)
  Sender: FDA-Public Use
  Company Number: None

PATIENT
  Age: 60 Year
  Sex: Male
  Weight: 107.0489 kg

DRUGS (4)
  1. CARBOPLATIN [Suspect]
     Indication: SMALL CELL LUNG CANCER STAGE UNSPECIFIED
     Dosage: ACU 5 =786 MG D1 /21D CYCL
     Dates: start: 20041027
  2. IRINOTECAN [Suspect]
     Indication: SMALL CELL LUNG CANCER STAGE UNSPECIFIED
     Dosage: 50 MG/M2 =10 MG DAY 1 DAY 8 IV
     Route: 042
     Dates: start: 20041027
  3. DECADRON [Concomitant]
  4. ALOXI [Concomitant]

REACTIONS (2)
  - PNEUMONITIS [None]
  - SPUTUM ABNORMAL [None]
